FAERS Safety Report 7094571-7 (Version None)
Quarter: 2010Q4

REPORT INFORMATION
  Report Type: 
  Country: None (occurrence: None)
  Receive Date: 20101110
  Receipt Date: 20101102
  Transmission Date: 20110411
  Serious: Yes (Other)
  Sender: FDA-Public Use
  Company Number: JP-PFIZER INC-2010140280

PATIENT
  Age: 70 Year
  Sex: Male

DRUGS (8)
  1. LYRICA [Suspect]
     Indication: POST HERPETIC NEURALGIA
     Dosage: 75 MG, 2X/DAY
     Route: 048
     Dates: start: 20100625, end: 20100704
  2. LYRICA [Suspect]
     Dosage: UNK MG, 1X/DAY
     Dates: start: 20100705, end: 20100818
  3. LOXONIN [Concomitant]
     Indication: PAIN
     Dosage: 60 MG, 3X/DAY
     Route: 048
     Dates: start: 20080321
  4. SELBEX [Concomitant]
     Indication: GASTRITIS
     Dosage: 50 MG, 3X/DAY
     Route: 048
     Dates: start: 20080321
  5. GASTER [Concomitant]
     Indication: GASTRITIS
     Dosage: 10 MG, 2X/DAY
     Route: 048
     Dates: start: 20081212
  6. SIGMART [Concomitant]
     Indication: HYPERTENSION
     Dosage: 5 MG, 2X/DAY
     Route: 048
     Dates: start: 20090525
  7. EPADEL [Concomitant]
     Indication: HYPERLIPIDAEMIA
     Dosage: 900 MG, 2X/DAY
     Route: 048
     Dates: start: 20090101
  8. NORVASC [Concomitant]
     Indication: HYPERTENSION
     Dosage: 5 MG, 1X/DAY
     Route: 048
     Dates: start: 20091104

REACTIONS (2)
  - HYPERURICAEMIA [None]
  - RENAL IMPAIRMENT [None]
